FAERS Safety Report 9413210 (Version 2)
Quarter: 2013Q3

REPORT INFORMATION
  Report Type: Spontaneous
  Country: US (occurrence: US)
  Receive Date: 20130722
  Receipt Date: 20130813
  Transmission Date: 20140515
  Serious: No
  Sender: FDA-Public Use
  Company Number: US-TEVA-420272USA

PATIENT
  Age: 61 Year
  Sex: Male
  Weight: 107.14 kg

DRUGS (12)
  1. PROAIR HFA [Suspect]
     Indication: COUGH
     Dates: start: 20130717
  2. CHERATUSSIN AC [Concomitant]
     Indication: COUGH
     Dosage: 100-10MG/5ML 2 TSP Q 4H
     Route: 048
  3. BUPROPION [Concomitant]
     Indication: MAJOR DEPRESSION
     Dosage: 300 MILLIGRAM DAILY;
  4. RISPERIDONE [Concomitant]
     Indication: PSYCHOTIC DISORDER
     Dosage: 6 MILLIGRAM DAILY;
  5. Z-PAK [Concomitant]
     Indication: COUGH
  6. PROZAC [Concomitant]
     Indication: MAJOR DEPRESSION
  7. LOSARTAN [Concomitant]
     Indication: RENAL DISORDER
  8. SIMVASTATIN [Concomitant]
     Indication: BLOOD CHOLESTEROL INCREASED
  9. OMEPRAZOLE [Concomitant]
     Indication: GASTROOESOPHAGEAL REFLUX DISEASE
  10. TAMSULOSIN [Concomitant]
     Indication: BENIGN PROSTATIC HYPERPLASIA
  11. NOVOLIN 70/30 [Concomitant]
     Indication: TYPE 1 DIABETES MELLITUS
  12. LANTUS [Concomitant]
     Indication: TYPE 1 DIABETES MELLITUS

REACTIONS (4)
  - Headache [Not Recovered/Not Resolved]
  - Oropharyngeal pain [Not Recovered/Not Resolved]
  - Cough [Not Recovered/Not Resolved]
  - Chest pain [Unknown]
